FAERS Safety Report 6100132-6 (Version None)
Quarter: 2009Q1

REPORT INFORMATION
  Report Type: 
  Country: None (occurrence: None)
  Receive Date: 20090226
  Receipt Date: 20090211
  Transmission Date: 20090719
  Serious: Yes (Other)
  Sender: FDA-Public Use
  Company Number: 2009S1002434

PATIENT
  Age: 17 Year
  Sex: Male

DRUGS (12)
  1. ONDANSETRON HCL [Suspect]
     Indication: ANAESTHESIA
     Dosage: 4 MG; INTRAVENOUS
     Route: 042
     Dates: start: 20090122, end: 20090122
  2. TRAMADOL HCL [Suspect]
     Indication: ANAESTHESIA
     Dates: start: 20060122, end: 20090122
  3. FENTANYL [Concomitant]
  4. GLYCOPYROLATE [Concomitant]
  5. MIDAZOLAM HCL [Concomitant]
  6. NEOSTIGMINE [Concomitant]
  7. NITROUS OXIDE [Concomitant]
  8. OXYGEN [Concomitant]
  9. PANCURONIUM [Concomitant]
  10. PROCYCLIDINE HYDROCHLORIDE 2MG TAB [Concomitant]
  11. PROPOFOL [Concomitant]
  12. SEVOFLURANE [Concomitant]

REACTIONS (2)
  - BLINDNESS TRANSIENT [None]
  - DYSTONIA [None]
